FAERS Safety Report 15725079 (Version 1)
Quarter: 2018Q4

REPORT INFORMATION
  Report Type: Other
  Country: CN (occurrence: CN)
  Receive Date: 20181215
  Receipt Date: 20181215
  Transmission Date: 20190205
  Serious: Yes (Other)
  Sender: FDA-Public Use
  Company Number: CN-MERZ NORTH AMERICA, INC.-18MRZ-00642

PATIENT
  Age: 25 Year
  Sex: Female

DRUGS (1)
  1. XEOMIN [Suspect]
     Active Substance: INCOBOTULINUMTOXINA
     Indication: NEUROMUSCULAR BLOCKING THERAPY
     Dosage: UNKNOWN
     Route: 030
     Dates: start: 2016, end: 2016

REACTIONS (3)
  - Off label use [Unknown]
  - Botulism [Recovered/Resolved]
  - Toxicity to various agents [Unknown]
